FAERS Safety Report 18649692 (Version 1)
Quarter: 2020Q4

REPORT INFORMATION
  Report Type: Spontaneous
  Country: US (occurrence: US)
  Receive Date: 20201222
  Receipt Date: 20201222
  Transmission Date: 20210114
  Serious: No
  Sender: FDA-Public Use
  Company Number: US-PFIZER INC-2020504471

PATIENT

DRUGS (1)
  1. XANAX [Suspect]
     Active Substance: ALPRAZOLAM
     Indication: VOCAL CORD PARALYSIS
     Dosage: UNK

REACTIONS (3)
  - Dyspnoea [Unknown]
  - Drug effective for unapproved indication [Unknown]
  - Off label use [Unknown]
